FAERS Safety Report 22194632 (Version 1)
Quarter: 2023Q2

REPORT INFORMATION
  Report Type: Spontaneous
  Country: BR (occurrence: BR)
  Receive Date: 20230411
  Receipt Date: 20230411
  Transmission Date: 20230722
  Serious: Yes (Other)
  Sender: FDA-Public Use
  Company Number: BR-BAYER-2023A045747

PATIENT
  Age: 88 Year
  Sex: Female

DRUGS (1)
  1. RIVAROXABAN [Suspect]
     Active Substance: RIVAROXABAN
     Indication: Thrombosis
     Dosage: 2.5 MG
     Route: 048
     Dates: start: 20220505

REACTIONS (1)
  - Thrombosis [Not Recovered/Not Resolved]
